FAERS Safety Report 13588825 (Version 1)
Quarter: 2017Q2

REPORT INFORMATION
  Report Type: Spontaneous
  Country: US (occurrence: US)
  Receive Date: 20170529
  Receipt Date: 20170529
  Transmission Date: 20170830
  Serious: Yes (Death, Other)
  Sender: FDA-Public Use
  Company Number: US-009507513-1705CAN014098

PATIENT
  Age: 66 Year
  Sex: Male

DRUGS (6)
  1. METHYLPREDNISOLONE. [Suspect]
     Active Substance: METHYLPREDNISOLONE
     Indication: ATRIOVENTRICULAR BLOCK COMPLETE
  2. FUROSEMIDE. [Concomitant]
     Active Substance: FUROSEMIDE
     Indication: PULMONARY CONGESTION
     Dosage: UNK
  3. IPILIMUMAB [Concomitant]
     Active Substance: IPILIMUMAB
     Indication: CHRONIC MYELOMONOCYTIC LEUKAEMIA
  4. DOPAMINE [Concomitant]
     Active Substance: DOPAMINE\DOPAMINE HYDROCHLORIDE
     Indication: HYPOTENSION
  5. DEXAMETHASONE. [Suspect]
     Active Substance: DEXAMETHASONE
     Indication: COLITIS
     Dosage: UNK
     Route: 048
  6. METHYLPREDNISOLONE. [Suspect]
     Active Substance: METHYLPREDNISOLONE
     Indication: ATRIOVENTRICULAR BLOCK SECOND DEGREE
     Dosage: HIGH DOSE 1000 MG DAILY
     Route: 042

REACTIONS (2)
  - Myocarditis [Fatal]
  - Drug ineffective [Unknown]
